FAERS Safety Report 5336224-9 (Version None)
Quarter: 2007Q2

REPORT INFORMATION
  Report Type: 
  Country: None (occurrence: None)
  Receive Date: 20070315
  Receipt Date: 20061216
  Transmission Date: 20071010
  Serious: No
  Sender: FDA-Public Use
  Company Number: BDI-008960

PATIENT
  Age: 33 Year
  Sex: Female
  Weight: 79.55 kg

DRUGS (1)
  1. MULTIHANCE [Suspect]
     Indication: NUCLEAR MAGNETIC RESONANCE IMAGING BRAIN
     Dosage: 16 ML ONCE IV
     Route: 042
     Dates: start: 20061214, end: 20061214

REACTIONS (1)
  - VOMITING [None]
